FAERS Safety Report 6830989-2 (Version None)
Quarter: 2010Q3

REPORT INFORMATION
  Report Type: 
  Country: None (occurrence: None)
  Receive Date: 20100712
  Receipt Date: 20100706
  Transmission Date: 20110219
  Serious: Yes (Other)
  Sender: FDA-Public Use
  Company Number: US-SANOFI-AVENTIS-2010SA039513

PATIENT
  Age: 45 Year
  Sex: Female

DRUGS (8)
  1. ARAVA [Suspect]
     Route: 048
     Dates: start: 20080312, end: 20090201
  2. ETANERCEPT [Suspect]
     Indication: RHEUMATOID ARTHRITIS
     Route: 058
     Dates: start: 20071210, end: 20091201
  3. IMURAN [Suspect]
     Route: 065
     Dates: start: 20071001, end: 20090201
  4. CELLCEPT [Suspect]
     Route: 065
     Dates: start: 20070110, end: 20090201
  5. PREDNISONE [Suspect]
     Route: 065
     Dates: start: 20070901, end: 20090201
  6. ACYCLOVIR [Suspect]
     Route: 065
     Dates: start: 20070911, end: 20071010
  7. METHOTREXATE [Concomitant]
     Dosage: 1 IN 1 WEEKS
     Route: 048
  8. INSULIN [Concomitant]

REACTIONS (5)
  - ABSCESS LIMB [None]
  - ARTHRALGIA [None]
  - ARTHRITIS [None]
  - RED BLOOD CELL SEDIMENTATION RATE INCREASED [None]
  - RENAL FAILURE CHRONIC [None]
